FAERS Safety Report 7228019-6 (Version None)
Quarter: 2010Q4

REPORT INFORMATION
  Report Type: 
  Country: None (occurrence: None)
  Receive Date: 20101126
  Receipt Date: 20100927
  Transmission Date: 20110411
  Serious: No
  Sender: FDA-Public Use
  Company Number: 315493

PATIENT
  Sex: Female

DRUGS (4)
  1. VICTOZA [Suspect]
     Indication: PRODUCT USED FOR UNKNOWN INDICATION
     Dosage: SUBCUTANEOUS
     Route: 058
  2. AVANDIA [Concomitant]
  3. JANUVIA (SITAGLIPTIN) TABLET [Concomitant]
  4. METFORMIN HCL [Concomitant]

REACTIONS (1)
  - CONSTIPATION [None]
